FAERS Safety Report 4456680-8 (Version None)
Quarter: 2004Q3

REPORT INFORMATION
  Report Type: 
  Country: None (occurrence: None)
  Receive Date: 20040921
  Receipt Date: 20040816
  Transmission Date: 20050211
  Serious: Yes (Hospitalization)
  Sender: FDA-Public Use
  Company Number: 2003125959

PATIENT
  Age: 56 Year
  Sex: Female

DRUGS (4)
  1. CITALOR (ATORVASTATIN) [Suspect]
     Indication: DYSLIPIDAEMIA
     Dosage: 20 MG (20 MG, 1 IN 1 D), ORAL
     Route: 048
     Dates: start: 19970101
  2. LIPITOR [Suspect]
     Indication: ILL-DEFINED DISORDER
     Dates: start: 20040101
  3. GLIBOMET (GLIBENCLAMIDE, METFORMIN HYDROCHLORIDE) [Concomitant]
  4. ACARBOSE (ACARBOSE) [Concomitant]

REACTIONS (7)
  - BLOOD CHOLESTEROL INCREASED [None]
  - BURNING SENSATION [None]
  - CHOLELITHIASIS [None]
  - DUODENAL ULCER [None]
  - GASTRIC ULCER [None]
  - PAIN [None]
  - TREMOR [None]
